FAERS Safety Report 12936414 (Version 1)
Quarter: 2016Q4

REPORT INFORMATION
  Report Type: Spontaneous
  Country: US (occurrence: US)
  Receive Date: 20161114
  Receipt Date: 20161114
  Transmission Date: 20170207
  Serious: Yes (Other)
  Sender: FDA-Public Use
  Company Number: US-STRIDES ARCOLAB LIMITED-2016SP014433

PATIENT

DRUGS (3)
  1. MYCOPHENOLATE MOFETIL. [Suspect]
     Active Substance: MYCOPHENOLATE MOFETIL
     Indication: IMMUNOSUPPRESSION
     Dosage: UNK
     Route: 048
  2. TACROLIMUS. [Suspect]
     Active Substance: TACROLIMUS
     Indication: IMMUNOSUPPRESSION
     Dosage: UNK
     Route: 048
  3. PREDNISOLONE. [Suspect]
     Active Substance: PREDNISOLONE
     Indication: IMMUNOSUPPRESSION
     Dosage: UNK
     Route: 048

REACTIONS (18)
  - Endophthalmitis [Unknown]
  - Keratitis fungal [Unknown]
  - Retinal detachment [Unknown]
  - Disease recurrence [Unknown]
  - Corneal epithelium defect [Unknown]
  - Corneal perforation [Unknown]
  - Staphylococcal infection [Unknown]
  - Vitritis [Unknown]
  - Candida infection [Unknown]
  - Vitreous disorder [Unknown]
  - Choroidal effusion [Unknown]
  - Conjunctivitis [Unknown]
  - Ulcerative keratitis [Recovered/Resolved]
  - Vision blurred [Unknown]
  - Subretinal fibrosis [Unknown]
  - Hypotony of eye [Unknown]
  - Corneal disorder [Unknown]
  - Visual acuity reduced [Unknown]

NARRATIVE: CASE EVENT DATE: 200901
